FAERS Safety Report 7873684-3 (Version None)
Quarter: 2011Q4

REPORT INFORMATION
  Report Type: 
  Country: None (occurrence: None)
  Receive Date: 20111030
  Receipt Date: 20110509
  Transmission Date: 20120403
  Serious: No
  Sender: FDA-Public Use
  Company Number: US-AMGEN-USASP2011024156

PATIENT
  Age: 15 Year
  Sex: Female
  Weight: 63.5 kg

DRUGS (13)
  1. TRAMADOL HCL [Concomitant]
     Dosage: 50 MG, UNK
  2. ONDASETRON                         /00955301/ [Concomitant]
     Dosage: 8 MG, UNK
  3. ALLEGRA [Concomitant]
     Dosage: 30 MG, UNK
  4. METHOTREXATE [Concomitant]
     Dosage: UNK
     Route: 058
  5. MUCINEX [Concomitant]
     Dosage: UNK MG, UNK
  6. CALCIUM CARBONATE [Concomitant]
     Dosage: UNK
  7. FOLIC ACID [Concomitant]
     Dosage: 5 MG, UNK
  8. VERAMYST [Concomitant]
     Dosage: 27.5 A?G, UNK
  9. MELOXICAM [Concomitant]
     Dosage: 15 MG, UNK
  10. ENBREL [Suspect]
     Indication: PRODUCT USED FOR UNKNOWN INDICATION
     Dosage: 25 MG, 2 TIMES/WK
     Route: 058
  11. RANITIDINE [Concomitant]
     Dosage: 150 MG, UNK
  12. PREVACID [Concomitant]
     Dosage: 30 MG, PRN
  13. MULTIVITAMIN                       /00097801/ [Concomitant]
     Dosage: UNK

REACTIONS (4)
  - LYMPHADENOPATHY [None]
  - NAUSEA [None]
  - DIZZINESS [None]
  - FATIGUE [None]
